FAERS Safety Report 9611804 (Version 2)
Quarter: 2013Q4

REPORT INFORMATION
  Report Type: Spontaneous
  Country: US (occurrence: US)
  Receive Date: 20131010
  Receipt Date: 20131029
  Transmission Date: 20140711
  Serious: Yes (Other)
  Sender: FDA-Public Use
  Company Number: US-JNJFOC-20131002276

PATIENT
  Age: 22 Year
  Sex: Female
  Weight: 67.13 kg

DRUGS (9)
  1. STELARA [Suspect]
     Indication: PSORIASIS
     Route: 058
     Dates: start: 20120906
  2. STELARA [Suspect]
     Indication: PSORIASIS
     Route: 058
     Dates: start: 20130606
  3. STELARA [Suspect]
     Indication: PSORIASIS
     Route: 058
     Dates: start: 20130308
  4. STELARA [Suspect]
     Indication: PSORIASIS
     Route: 058
     Dates: start: 20121206
  5. STELARA [Suspect]
     Indication: PSORIASIS
     Route: 058
     Dates: start: 20131001
  6. STELARA [Suspect]
     Indication: PSORIASIS
     Route: 058
     Dates: start: 20120628
  7. STELARA [Suspect]
     Indication: PSORIASIS
     Route: 058
     Dates: start: 20120329
  8. STELARA [Suspect]
     Indication: PSORIASIS
     Route: 058
     Dates: start: 20111229
  9. STELARA [Suspect]
     Indication: PSORIASIS
     Route: 058
     Dates: start: 20110901

REACTIONS (2)
  - Interstitial lung disease [Unknown]
  - Herpes zoster [Recovered/Resolved]
